FAERS Safety Report 5009257-X (Version None)
Quarter: 2006Q2

REPORT INFORMATION
  Report Type: 
  Country: None (occurrence: None)
  Receive Date: 20060522
  Receipt Date: 20060515
  Transmission Date: 20061013
  Serious: Yes (Death, Hospitalization)
  Sender: FDA-Public Use
  Company Number: 2006-05-1399

PATIENT
  Sex: Male

DRUGS (2)
  1. TEMODAR [Suspect]
     Indication: GLIOMA
     Dosage: ORAL
     Route: 048
     Dates: start: 20051227
  2. RADIATION THERAPY [Concomitant]

REACTIONS (1)
  - THROMBOCYTOPENIA [None]
